APPROVED DRUG PRODUCT: PEPCID AC
Active Ingredient: FAMOTIDINE
Strength: 10MG **Federal Register determination that product was not discontinued or withdrawn for safety or effectiveness reasons**
Dosage Form/Route: TABLET, CHEWABLE;ORAL
Application: N020801 | Product #001
Applicant: KENVUE BRANDS LLC
Approved: Sep 24, 1998 | RLD: Yes | RS: No | Type: DISCN